FAERS Safety Report 9130749 (Version 1)
Quarter: 2013Q1

REPORT INFORMATION
  Report Type: Spontaneous
  Country: US (occurrence: US)
  Receive Date: 20130301
  Receipt Date: 20130301
  Transmission Date: 20140127
  Serious: Yes (Hospitalization)
  Sender: FDA-Public Use
  Company Number: PHEH2013US004827

PATIENT
  Sex: Female

DRUGS (4)
  1. RECLAST [Suspect]
     Dosage: UNK UKN, UNK
  2. MULTI-VIT [Concomitant]
  3. VITAMIN D3 [Concomitant]
  4. CALCIUM [Concomitant]

REACTIONS (3)
  - Bacterial infection [Unknown]
  - Emphysema [Unknown]
  - Blood calcium decreased [Unknown]
